FAERS Safety Report 7605765-3 (Version None)
Quarter: 2011Q3

REPORT INFORMATION
  Report Type: 
  Country: None (occurrence: None)
  Receive Date: 20110713
  Receipt Date: 20110705
  Transmission Date: 20111222
  Serious: Yes (Other)
  Sender: FDA-Public Use
  Company Number: BR-BRISTOL-MYERS SQUIBB COMPANY-15618317

PATIENT
  Age: 40 Year
  Sex: Female
  Weight: 53 kg

DRUGS (1)
  1. RUBRANOVA INJ [Suspect]
     Indication: VITAMIN B12 DEFICIENCY
     Dosage: 1 DF: 5000 INJ FIRST TIME :2005 OR 2006. 16MAR2011:RECEIVED 5000 MCG VIA INTRAMUSCULAR
     Route: 030
     Dates: start: 20110101, end: 20110301

REACTIONS (1)
  - HYPERSENSITIVITY [None]
